FAERS Safety Report 4375877-9 (Version None)
Quarter: 2004Q2

REPORT INFORMATION
  Report Type: 
  Country: None (occurrence: None)
  Receive Date: 20040611
  Receipt Date: 20040511
  Transmission Date: 20050107
  Serious: Yes (Hospitalization)
  Sender: FDA-Public Use
  Company Number: 200411913FR

PATIENT
  Age: 48 Year
  Sex: Male

DRUGS (6)
  1. CLAFORAN [Suspect]
     Route: 042
     Dates: start: 20040401, end: 20040405
  2. FLAGYL [Suspect]
     Route: 042
     Dates: start: 20040401, end: 20040405
  3. AUGMENTIN [Suspect]
     Route: 042
     Dates: start: 20040405, end: 20040413
  4. CLAMOXYL [Suspect]
     Route: 042
  5. LARGACTIL [Concomitant]
     Route: 048
     Dates: end: 20040413
  6. HALDOL [Concomitant]
     Route: 048

REACTIONS (1)
  - AGRANULOCYTOSIS [None]
